FAERS Safety Report 4481277-3 (Version None)
Quarter: 2004Q4

REPORT INFORMATION
  Report Type: 
  Country: None (occurrence: None)
  Receive Date: 20041021
  Receipt Date: 20040826
  Transmission Date: 20050328
  Serious: Yes (Hospitalization)
  Sender: FDA-Public Use
  Company Number: DK-BRISTOL-MYERS SQUIBB COMPANY-12684221

PATIENT
  Age: 79 Year
  Sex: Female
  Weight: 58 kg

DRUGS (7)
  1. CISPLATIN [Suspect]
     Indication: BLADDER CANCER
     Dates: start: 20040614, end: 20040614
  2. GEMCITABINE [Suspect]
     Indication: BLADDER CANCER
     Dates: start: 20040612, end: 20040612
  3. PARACETAMOL [Concomitant]
     Dates: start: 20040601
  4. ACETYLSALICYLATE DE SODIUM [Concomitant]
  5. ALENDRONATE SODIUM [Concomitant]
  6. DICLOFENAC [Concomitant]
     Dates: start: 20040601
  7. DIPYRIDAMOLE [Concomitant]

REACTIONS (2)
  - CATHETER RELATED INFECTION [None]
  - UROSEPSIS [None]
